FAERS Safety Report 6666793-8 (Version None)
Quarter: 2010Q2

REPORT INFORMATION
  Report Type: 
  Country: None (occurrence: None)
  Receive Date: 20100405
  Receipt Date: 20100323
  Transmission Date: 20101027
  Serious: Yes (Hospitalization)
  Sender: FDA-Public Use
  Company Number: IT-JNJFOC-20100301035

PATIENT
  Sex: Female

DRUGS (1)
  1. LEVOXACIN [Suspect]
     Indication: DRUG USE FOR UNKNOWN INDICATION
     Route: 065

REACTIONS (3)
  - APHASIA [None]
  - CONFUSIONAL STATE [None]
  - DISORIENTATION [None]
